FAERS Safety Report 15023776 (Version 2)
Quarter: 2018Q4

REPORT INFORMATION
  Report Type: Report from Study
  Country: BR (occurrence: BR)
  Receive Date: 20180618
  Receipt Date: 20181207
  Transmission Date: 20190204
  Serious: Yes (Other)
  Sender: FDA-Public Use
  Company Number: BR-UCBSA-2018020890

PATIENT
  Sex: Male
  Weight: 82 kg

DRUGS (10)
  1. VIMPAT [Suspect]
     Active Substance: LACOSAMIDE
     Dosage: 200 MG, 2X/DAY (BID)
     Route: 048
     Dates: start: 2018, end: 20180605
  2. LEVETIRACETAM. [Suspect]
     Active Substance: LEVETIRACETAM
     Indication: EPILEPSY
     Dosage: 1000 MG, UNK
     Route: 048
     Dates: start: 2009
  3. VIMPAT [Suspect]
     Active Substance: LACOSAMIDE
     Dosage: 100 MG, ONCE DAILY (QD)
     Route: 048
     Dates: start: 20180601, end: 2018
  4. LEVETIRACETAM. [Suspect]
     Active Substance: LEVETIRACETAM
     Dosage: 250 MG, 2X/DAY (BID)
     Route: 048
     Dates: start: 2011
  5. SABRIL [Concomitant]
     Active Substance: VIGABATRIN
     Indication: EPILEPSY
     Dosage: UNK
     Route: 048
  6. LEVETIRACETAM. [Suspect]
     Active Substance: LEVETIRACETAM
     Dosage: (1000 MG MORNING, 750 MG AFTERNOON 1000 MG AT NIGHT), 3X/DAY (TID)
     Route: 048
     Dates: start: 2011
  7. VIMPAT [Suspect]
     Active Substance: LACOSAMIDE
     Dosage: 100 MG, 2X/DAY (BID)
     Route: 048
     Dates: start: 20180428, end: 20180531
  8. LEVETIRACETAM. [Suspect]
     Active Substance: LEVETIRACETAM
     Dosage: 750 MG, 3X/DAY (TID)
     Route: 048
     Dates: start: 2011
  9. VIMPAT [Suspect]
     Active Substance: LACOSAMIDE
     Indication: EPILEPSY
     Dosage: 50 MG, 2X/DAY (BID)
     Route: 048
     Dates: start: 20180406, end: 201804
  10. CANNABIDIOL [Concomitant]
     Active Substance: CANNABIDIOL
     Indication: EPILEPSY
     Dosage: UNK, 3X/DAY (TID)
     Route: 048
     Dates: start: 2014

REACTIONS (5)
  - Seizure [Recovering/Resolving]
  - Off label use [Unknown]
  - Cognitive disorder [Not Recovered/Not Resolved]
  - Somnolence [Recovering/Resolving]
  - Agitation [Recovering/Resolving]

NARRATIVE: CASE EVENT DATE: 2009
